FAERS Safety Report 9571479 (Version 2)
Quarter: 2013Q4

REPORT INFORMATION
  Report Type: Spontaneous
  Country: FR (occurrence: FR)
  Receive Date: 20131001
  Receipt Date: 20131001
  Transmission Date: 20140711
  Serious: Yes (Hospitalization)
  Sender: FDA-Public Use
  Company Number: FR-JNJFOC-20120211027

PATIENT
  Age: 44 Year
  Sex: Male

DRUGS (2)
  1. REMICADE [Suspect]
     Indication: PYODERMA GANGRENOSUM
     Route: 042
     Dates: start: 20120117, end: 20120117
  2. LAMICTAL [Concomitant]
     Indication: EPILEPSY
     Dosage: FOR 2 YEARS
     Route: 065

REACTIONS (7)
  - Partial seizures with secondary generalisation [Recovered/Resolved with Sequelae]
  - Injury [Unknown]
  - Periorbital haematoma [Unknown]
  - Infusion related reaction [Unknown]
  - Facial bones fracture [Unknown]
  - Lip injury [Unknown]
  - Off label use [Unknown]
